FAERS Safety Report 7500642-0 (Version None)
Quarter: 2011Q2

REPORT INFORMATION
  Report Type: 
  Country: None (occurrence: None)
  Receive Date: 20110517
  Receipt Date: 20110511
  Transmission Date: 20111010
  Serious: Yes (Hospitalization, Other)
  Sender: FDA-Public Use
  Company Number: SP03549

PATIENT
  Age: 85 Year
  Sex: Female

DRUGS (7)
  1. CANDESARTAN CILEXETIL [Concomitant]
  2. EPERISONE HYDROCHLORIDE [Concomitant]
  3. ETODOLAC [Concomitant]
  4. AZULENE SULFONATE SODIUM/L-GLUTAMINE [Concomitant]
  5. ALFACALCIDOL [Concomitant]
  6. VISICOL [Suspect]
     Indication: BOWEL PREPARATION
     Dosage: (50 GM), ORAL
     Route: 048
     Dates: start: 20110208, end: 20110208
  7. BEZAFIBRATE [Concomitant]

REACTIONS (5)
  - TUBULOINTERSTITIAL NEPHRITIS [None]
  - HYPOAESTHESIA [None]
  - RENAL FAILURE ACUTE [None]
  - ACUTE PHOSPHATE NEPHROPATHY [None]
  - RENAL TUBULAR NECROSIS [None]
